FAERS Safety Report 22926370 (Version 3)
Quarter: 2023Q4

REPORT INFORMATION
  Report Type: Spontaneous
  Country: GB (occurrence: GB)
  Receive Date: 20230909
  Receipt Date: 20231011
  Transmission Date: 20240110
  Serious: Yes (Death)
  Sender: FDA-Public Use
  Company Number: GB-MHRA-MED-202308301155166980-SNFVB

PATIENT
  Sex: Male

DRUGS (4)
  1. OLANZAPINE [Suspect]
     Active Substance: OLANZAPINE
     Indication: Adverse drug reaction
     Dosage: 17.5 MILLIGRAM DAILY;
     Route: 065
  2. OLANZAPINE [Suspect]
     Active Substance: OLANZAPINE
     Indication: Depression
  3. OLANZAPINE [Suspect]
     Active Substance: OLANZAPINE
     Indication: Psychotic symptom
  4. OLANZAPINE [Suspect]
     Active Substance: OLANZAPINE
     Indication: Major depression

REACTIONS (3)
  - Colitis ischaemic [Fatal]
  - Constipation [Not Recovered/Not Resolved]
  - Perforation [Unknown]

NARRATIVE: CASE EVENT DATE: 20211108
